FAERS Safety Report 25777021 (Version 1)
Quarter: 2025Q3

REPORT INFORMATION
  Report Type: Spontaneous
  Country: US (occurrence: US)
  Receive Date: 20250909
  Receipt Date: 20250909
  Transmission Date: 20251020
  Serious: No
  Sender: DOMPE FARMACEUTICI
  Company Number: US-FARMAPROD-202409-3397

PATIENT
  Sex: Female

DRUGS (5)
  1. OXERVATE [Suspect]
     Active Substance: CENEGERMIN-BKBJ
     Indication: Neurotrophic keratopathy
     Route: 047
     Dates: start: 20240909
  2. OXERVATE [Suspect]
     Active Substance: CENEGERMIN-BKBJ
  3. GENTEAL TEARS (MILD) [Concomitant]
     Active Substance: DEXTRAN 70\HYPROMELLOSE 2910 (4000 MPA.S)
  4. TYRVAYA [Concomitant]
     Active Substance: VARENICLINE TARTRATE
  5. MIEBO [Concomitant]
     Active Substance: PERFLUOROHEXYLOCTANE

REACTIONS (4)
  - Eye swelling [Not Recovered/Not Resolved]
  - Photophobia [Not Recovered/Not Resolved]
  - Ocular discomfort [Not Recovered/Not Resolved]
  - Dry eye [Not Recovered/Not Resolved]
